FAERS Safety Report 8613606-0 (Version None)
Quarter: 2012Q3

REPORT INFORMATION
  Report Type: 
  Country: None (occurrence: None)
  Receive Date: 20120823
  Receipt Date: 20120808
  Transmission Date: 20120928
  Serious: Yes (Hospitalization)
  Sender: FDA-Public Use
  Company Number: IT-MERCK-1208ITA004218

PATIENT

DRUGS (6)
  1. PEG-INTRON [Suspect]
     Indication: HEPATITIS C
     Dosage: 150 MICROGRAM, QW
     Route: 058
     Dates: start: 20120723, end: 20120804
  2. WELLBUTRIN [Concomitant]
     Dosage: UNK
  3. ACETYLSALICYLIC ACID SRT [Concomitant]
     Dosage: 40 MG, QD
     Route: 048
  4. REBETOL [Suspect]
     Indication: HEPATITIS C
     Dosage: 1400 MG, QD
     Route: 048
     Dates: start: 20120723, end: 20120804
  5. NEBIVOLOL HCL [Concomitant]
     Dosage: 5 MG, QD
     Route: 048
  6. GABAPENTIN [Concomitant]

REACTIONS (4)
  - PRESYNCOPE [None]
  - DIARRHOEA [None]
  - PYREXIA [None]
  - ABDOMINAL PAIN [None]
